FAERS Safety Report 6025597-X (Version None)
Quarter: 2008Q4

REPORT INFORMATION
  Report Type: 
  Country: None (occurrence: None)
  Receive Date: 20081231
  Receipt Date: 20081219
  Transmission Date: 20090506
  Serious: Yes (Death)
  Sender: FDA-Public Use
  Company Number: ES-B.I. PHARMACEUTICALS,INC./RIDGEFIELD-2008-DE-07879GD

PATIENT

DRUGS (2)
  1. TIPRANAVIR [Suspect]
     Indication: HIV INFECTION
     Dosage: TIPRANAVIR 1 G/RITONAVIR 400 MG
  2. ANTIRETROVIRAL DRUGS [Suspect]
     Indication: HIV INFECTION

REACTIONS (1)
  - LUNG NEOPLASM MALIGNANT [None]
